FAERS Safety Report 6662220-5 (Version None)
Quarter: 2010Q1

REPORT INFORMATION
  Report Type: 
  Country: None (occurrence: None)
  Receive Date: 20100331
  Receipt Date: 20100323
  Transmission Date: 20100710
  Serious: Yes (Hospitalization)
  Sender: FDA-Public Use
  Company Number: GXKR2010FR03496

PATIENT
  Sex: Male

DRUGS (10)
  1. RIFAMPICIN [Suspect]
     Dosage: 300 MG, 6QD
     Route: 048
     Dates: start: 20100216, end: 20100224
  2. RIFAMPICIN [Suspect]
     Dosage: 300 MG, QID
     Route: 048
     Dates: start: 20100224
  3. ALLOPURINOL [Concomitant]
  4. PLAVIX [Concomitant]
  5. ESOMEPRAZOLE [Concomitant]
  6. CARDENSIEL [Concomitant]
  7. LOVENOX [Concomitant]
  8. LYRICA [Concomitant]
  9. TRAMADOL HCL [Concomitant]
  10. OFLOCET [Concomitant]
     Dosage: UNK
     Dates: start: 20100202

REACTIONS (5)
  - CHROMATURIA [None]
  - HYPERBILIRUBINAEMIA [None]
  - NAUSEA [None]
  - SKIN DISCOLOURATION [None]
  - VOMITING [None]
